FAERS Safety Report 16081021 (Version 1)
Quarter: 2019Q1

REPORT INFORMATION
  Report Type: Spontaneous
  Country: US (occurrence: US)
  Receive Date: 20190316
  Receipt Date: 20190316
  Transmission Date: 20190418
  Serious: No
  Sender: FDA-Public Use
  Company Number: US-DRREDDYS-USA/USA/19/0108495

PATIENT
  Sex: Female
  Weight: 50 kg

DRUGS (1)
  1. ATORVASTATIN TABLETS 10MG, 20 MG, 40 MG (091650) [Suspect]
     Active Substance: ATORVASTATIN
     Indication: BLOOD CHOLESTEROL
     Dosage: 20 MG TABLET BREAKING IN HALF FOR 10 MG ONCE A DAY BY MOUTH.
     Route: 048
     Dates: start: 20181106

REACTIONS (8)
  - Eyelids pruritus [Unknown]
  - Urticaria [Unknown]
  - Pruritus generalised [Unknown]
  - Erythema [Unknown]
  - Epistaxis [Unknown]
  - Rash [Unknown]
  - Irritability [Unknown]
  - Insomnia [Unknown]
